FAERS Safety Report 8261937-9 (Version None)
Quarter: 2012Q2

REPORT INFORMATION
  Report Type: 
  Country: None (occurrence: None)
  Receive Date: 20120405
  Receipt Date: 20120326
  Transmission Date: 20120825
  Serious: Yes (Other)
  Sender: FDA-Public Use
  Company Number: GB-PURDUE-USA-2012-0084811

PATIENT
  Age: 48 Year
  Sex: Male

DRUGS (3)
  1. CODAMIN [Suspect]
     Indication: NEUROPATHY PERIPHERAL
  2. TRAMADOL HCL [Suspect]
     Indication: NEUROPATHY PERIPHERAL
     Dosage: 100 MG, Q6- 8H
  3. OXYCONTIN [Suspect]
     Indication: NEUROPATHY PERIPHERAL
     Dosage: 30 MG, BID

REACTIONS (1)
  - HYPOGONADISM MALE [None]
